FAERS Safety Report 14712467 (Version 1)
Quarter: 2018Q2

REPORT INFORMATION
  Report Type: Spontaneous
  Country: US (occurrence: US)
  Receive Date: 20180404
  Receipt Date: 20180404
  Transmission Date: 20180711
  Serious: No
  Sender: FDA-Public Use
  Company Number: US-TEVA-781427ACC

PATIENT
  Sex: Female

DRUGS (1)
  1. MIMVEY LO [Suspect]
     Active Substance: ESTRADIOL\NORETHINDRONE ACETATE
     Dosage: ESTRADIOL/NORETHINDRONE : 0.5 MG/0.1 MG

REACTIONS (2)
  - Product use issue [Unknown]
  - Vomiting [Unknown]
